FAERS Safety Report 6671421-1 (Version None)
Quarter: 2010Q2

REPORT INFORMATION
  Report Type: 
  Country: None (occurrence: None)
  Receive Date: 20100406
  Receipt Date: 20100406
  Transmission Date: 20101027
  Serious: Yes (Life-Threatening, Disabling)
  Sender: FDA-Public Use
  Company Number: None

PATIENT
  Age: 47 Year
  Sex: Male
  Weight: 74.3899 kg

DRUGS (1)
  1. PREZISTA [Suspect]
     Indication: HIV INFECTION
     Dosage: 1 TAB EVERY 12 HOURS PO
     Route: 048
     Dates: start: 20091101, end: 20100401

REACTIONS (1)
  - HEPATITIS [None]
